FAERS Safety Report 25077894 (Version 5)
Quarter: 2025Q2

REPORT INFORMATION
  Report Type: Spontaneous
  Country: JP (occurrence: JP)
  Receive Date: 20250314
  Receipt Date: 20250606
  Transmission Date: 20250716
  Serious: Yes (Death, Other)
  Sender: VERICEL
  Company Number: JP-VERICEL-JP-VCEL-25-000057

PATIENT
  Age: 75 Year
  Sex: Male
  Weight: 73.1 kg

DRUGS (14)
  1. BROMELAINS [Suspect]
     Active Substance: BROMELAINS
     Indication: Burns second degree
     Route: 061
     Dates: start: 20250201, end: 20250201
  2. BROMELAINS [Suspect]
     Active Substance: BROMELAINS
     Indication: Burns third degree
  3. ACETAMINOPHEN [Concomitant]
     Active Substance: ACETAMINOPHEN
     Indication: Pyrexia
     Dosage: 1000 G/12 HOURS
     Route: 042
     Dates: start: 20250201, end: 20250201
  4. SODIUM PHOSPHATE [Concomitant]
     Active Substance: SODIUM PHOSPHATE
     Indication: Blood phosphorus increased
     Dosage: 20 ML/12 HOURS
     Route: 042
     Dates: start: 20250201, end: 20250202
  5. OMEPRAZOLE [Concomitant]
     Active Substance: OMEPRAZOLE
     Indication: Stress ulcer
     Dosage: 20 MG/12 HOURS
     Route: 042
     Dates: end: 20250204
  6. ACOALAN [Concomitant]
     Indication: Disseminated intravascular coagulation
     Dosage: 1600 ?G/24 HOURS
     Route: 042
     Dates: end: 20250204
  7. HUMAN RED BLOOD CELL [Concomitant]
     Active Substance: HUMAN RED BLOOD CELL
     Indication: Haemorrhage
     Dosage: /24 HOURS
     Route: 042
     Dates: end: 20250202
  8. IRRADIATED PLATELET CONCENTRATE-LEUKOCYTES REDUCED [Concomitant]
     Indication: Haemorrhage
     Route: 042
     Dates: end: 20250203
  9. FRESH FROZEN PLASMA [Concomitant]
     Active Substance: HUMAN PLASMA
     Indication: Haemorrhage
     Route: 042
     Dates: end: 20250204
  10. HYDROCORTISONE SODIUM PHOSPHATE [Concomitant]
     Active Substance: HYDROCORTISONE SODIUM PHOSPHATE
     Indication: Adrenal insufficiency
     Route: 042
     Dates: end: 20250204
  11. PROPOFOL [Concomitant]
     Active Substance: PROPOFOL
     Indication: Sedation
     Route: 042
     Dates: end: 20250204
  12. FENTANYL [Concomitant]
     Active Substance: FENTANYL
     Indication: Pain management
     Route: 042
     Dates: end: 20250204
  13. CALCIUM CHLORIDE\POTASSIUM CHLORIDE\SODIUM ACETATE\SODIUM CHLORIDE [Concomitant]
     Active Substance: CALCIUM CHLORIDE\POTASSIUM CHLORIDE\SODIUM ACETATE\SODIUM CHLORIDE
     Indication: Poor peripheral circulation
     Route: 042
     Dates: end: 20250204
  14. ALBUMINAR [Concomitant]
     Active Substance: ALBUMIN HUMAN
     Indication: Poor peripheral circulation
     Route: 042
     Dates: end: 20250204

REACTIONS (2)
  - Septic shock [Fatal]
  - Application site haemorrhage [Not Recovered/Not Resolved]

NARRATIVE: CASE EVENT DATE: 20250201
